FAERS Safety Report 23031693 (Version 1)
Quarter: 2023Q4

REPORT INFORMATION
  Report Type: Report from Study
  Country: US (occurrence: US)
  Receive Date: 20231005
  Receipt Date: 20231005
  Transmission Date: 20240110
  Serious: Yes (Hospitalization, Other)
  Sender: FDA-Public Use
  Company Number: US-UCBSA-2023047752

PATIENT
  Sex: Female

DRUGS (1)
  1. LACOSAMIDE [Suspect]
     Active Substance: LACOSAMIDE
     Indication: Epilepsy
     Dosage: 200 MILLIGRAM, 1T 2X/DAY (BID)

REACTIONS (3)
  - Knee arthroplasty [Unknown]
  - Post procedural complication [Unknown]
  - Femur fracture [Unknown]

NARRATIVE: CASE EVENT DATE: 20230101
